FAERS Safety Report 9167907 (Version 1)
Quarter: 2013Q1

REPORT INFORMATION
  Report Type: Spontaneous
  Country: CA (occurrence: CA)
  Receive Date: 20130318
  Receipt Date: 20130318
  Transmission Date: 20140127
  Serious: Yes (Death, Other)
  Sender: FDA-Public Use
  Company Number: PHHY2013CA026034

PATIENT
  Sex: Male

DRUGS (1)
  1. TASIGNA [Suspect]
     Indication: CHRONIC MYELOID LEUKAEMIA
     Dosage: 400 MG AM, 200 MG PM
     Route: 048
     Dates: start: 201006

REACTIONS (3)
  - Death [Fatal]
  - Cardiac disorder [Unknown]
  - Renal failure [Unknown]
